FAERS Safety Report 14512461 (Version 1)
Quarter: 2018Q1

REPORT INFORMATION
  Report Type: Spontaneous
  Country: US (occurrence: US)
  Receive Date: 20180209
  Receipt Date: 20180209
  Transmission Date: 20180509
  Serious: No
  Sender: FDA-Public Use
  Company Number: US-ALLERGAN-1716213US

PATIENT
  Age: 71 Year
  Sex: Male

DRUGS (11)
  1. BUSPIRONE [Concomitant]
     Active Substance: BUSPIRONE HYDROCHLORIDE
     Indication: ANXIETY
  2. ALOSETRON HYDROCHLORIDE. [Concomitant]
     Active Substance: ALOSETRON HYDROCHLORIDE
  3. SYSTANE (HYPROMELLOSE 2910 (4000 MPA.S)) [Concomitant]
     Active Substance: HYPROMELLOSE 2910 (4000 MPA.S)
     Indication: DRY EYE
     Dosage: UNK, PRN
  4. LUTEIN [Concomitant]
     Active Substance: LUTEIN
     Indication: SUPPLEMENTATION THERAPY
  5. FINASTERIDE. [Concomitant]
     Active Substance: FINASTERIDE
     Indication: MICTURITION URGENCY
  6. BUPROPION. [Concomitant]
     Active Substance: BUPROPION
  7. CYCLOBENZAPRINE. [Concomitant]
     Active Substance: CYCLOBENZAPRINE
     Indication: SPONDYLITIS
  8. FLORASTOR [Concomitant]
     Active Substance: SACCHAROMYCES CEREVISIAE
     Indication: NUTRITIONAL SUPPLEMENTATION
  9. RESTASIS [Suspect]
     Active Substance: CYCLOSPORINE
     Indication: LAGOPHTHALMOS
     Dosage: UNK, BID
     Route: 047
     Dates: start: 201612
  10. CIALIS [Concomitant]
     Active Substance: TADALAFIL
     Indication: MICTURITION URGENCY
  11. RAPAFLO [Concomitant]
     Active Substance: SILODOSIN
     Indication: BENIGN PROSTATIC HYPERPLASIA

REACTIONS (4)
  - Burning sensation [Unknown]
  - Off label use [Unknown]
  - Dry eye [Not Recovered/Not Resolved]
  - Lacrimation increased [Unknown]

NARRATIVE: CASE EVENT DATE: 201612
